FAERS Safety Report 5965320-8 (Version None)
Quarter: 2008Q4

REPORT INFORMATION
  Report Type: 
  Country: None (occurrence: None)
  Receive Date: 20081125
  Receipt Date: 20081114
  Transmission Date: 20090506
  Serious: Yes (Other)
  Sender: FDA-Public Use
  Company Number: US-ROCHE-597413

PATIENT
  Sex: Female
  Weight: 54.9 kg

DRUGS (1)
  1. CAPECITABINE [Suspect]
     Indication: DRUG USE FOR UNKNOWN INDICATION
     Dosage: FREQUENCY: 5 DAYS ON AND 2 DAYS OFF
     Route: 065
     Dates: start: 20080728, end: 20081031

REACTIONS (4)
  - DISEASE PROGRESSION [None]
  - DRY MOUTH [None]
  - GAIT DISTURBANCE [None]
  - METASTASES TO LIVER [None]
